FAERS Safety Report 23937689 (Version 1)
Quarter: 2024Q2

REPORT INFORMATION
  Report Type: Spontaneous
  Country: GB (occurrence: GB)
  Receive Date: 20240604
  Receipt Date: 20240604
  Transmission Date: 20240715
  Serious: Yes (Life-Threatening, Hospitalization, Disabling, Other)
  Sender: FDA-Public Use
  Company Number: None

PATIENT
  Age: 31 Year
  Sex: Female
  Weight: 63.5 kg

DRUGS (26)
  1. OMEPRAZOLE [Suspect]
     Active Substance: DONEPEZIL HYDROCHLORIDE\OMEPRAZOLE\OMEPRAZOLE MAGNESIUM
     Indication: Dyspepsia
     Route: 065
     Dates: start: 20110525
  2. DOMPERIDONE [Suspect]
     Active Substance: DOMPERIDONE
     Indication: Product used for unknown indication
     Route: 065
  3. PHOSPHORUS [Suspect]
     Active Substance: PHOSPHORUS
     Indication: Product used for unknown indication
     Dosage: UNK
     Route: 065
  4. PAROXETINE HYDROCHLORIDE [Suspect]
     Active Substance: PAROXETINE HYDROCHLORIDE\PAROXETINE HYDROCHLORIDE ANHYDROUS
     Indication: Product used for unknown indication
     Dosage: INTERRUPTED,
     Route: 065
     Dates: start: 1997, end: 201105
  5. PAROXETINE HYDROCHLORIDE [Suspect]
     Active Substance: PAROXETINE HYDROCHLORIDE\PAROXETINE HYDROCHLORIDE ANHYDROUS
     Indication: Product used for unknown indication
     Dosage: INTERRUPTED,
     Route: 065
     Dates: start: 201105, end: 20110706
  6. PAROXETINE HYDROCHLORIDE [Suspect]
     Active Substance: PAROXETINE HYDROCHLORIDE\PAROXETINE HYDROCHLORIDE ANHYDROUS
     Indication: Product used for unknown indication
     Dosage: INTERRUPTED,
     Route: 065
     Dates: start: 200812, end: 20101210
  7. QUETIAPINE [Suspect]
     Active Substance: QUETIAPINE
     Indication: Psychotic disorder
     Route: 065
     Dates: start: 20110224, end: 20110506
  8. CLONAZEPAM [Suspect]
     Active Substance: CLONAZEPAM
     Indication: Sedation
     Dosage: UNSURE,
     Route: 065
     Dates: start: 20110224, end: 20110410
  9. LORAZEPAM [Suspect]
     Active Substance: LORAZEPAM
     Indication: Sedation
     Route: 065
     Dates: start: 20110224, end: 20110410
  10. LORAZEPAM [Suspect]
     Active Substance: LORAZEPAM
     Indication: Sedation
     Route: 065
     Dates: start: 20110725
  11. LORAZEPAM [Suspect]
     Active Substance: LORAZEPAM
     Indication: Sedation
     Route: 065
     Dates: start: 20110523, end: 20110627
  12. LORAZEPAM [Suspect]
     Active Substance: LORAZEPAM
     Indication: Sedation
     Route: 065
     Dates: start: 20110202, end: 20110410
  13. MIRTAZAPINE [Suspect]
     Active Substance: MIRTAZAPINE
     Indication: Depression
     Dosage: UNSURE,
     Route: 065
     Dates: start: 20100923, end: 20101108
  14. MIRTAZAPINE [Suspect]
     Active Substance: MIRTAZAPINE
     Indication: Depression
     Dosage: 30MG IN THE DAY AND 15MG AT NIGHT),
     Route: 065
     Dates: start: 20110224, end: 20110506
  15. DIAZEPAM [Suspect]
     Active Substance: DIAZEPAM
     Indication: Muscle spasms
     Dosage: 5 MILLIGRAM, QID (5 MG QDS AND NOW ON 2-2-4 MG)
     Route: 065
     Dates: start: 20110725
  16. DIAZEPAM [Suspect]
     Active Substance: DIAZEPAM
     Indication: Muscle spasms
     Dosage: UNK
     Route: 065
     Dates: start: 20110725
  17. AMITRIPTYLINE [Suspect]
     Active Substance: AMITRIPTYLINE
     Indication: Muscle spasms
     Dosage: AT NIGHT
     Route: 065
     Dates: start: 20110810
  18. AMITRIPTYLINE [Suspect]
     Active Substance: AMITRIPTYLINE
     Indication: Muscle spasms
     Route: 065
  19. PROCYCLIDINE [Suspect]
     Active Substance: PROCYCLIDINE
     Indication: Oculogyric crisis
     Route: 065
     Dates: start: 20110503, end: 20110510
  20. PROCYCLIDINE [Suspect]
     Active Substance: PROCYCLIDINE
     Indication: Oculogyric crisis
     Dosage: TIME INTERVAL: 0.33333333 DAYS
     Route: 065
     Dates: start: 20110503, end: 20110510
  21. PROCYCLIDINE [Suspect]
     Active Substance: PROCYCLIDINE
     Indication: Oculogyric crisis
     Route: 065
     Dates: start: 1995, end: 1995
  22. TRAMADOL [Suspect]
     Active Substance: TRAMADOL\TRAMADOL HYDROCHLORIDE
     Indication: Pain
     Dosage: UNSPECIFIED, 50-100, 4 CYCLICAL
     Route: 065
     Dates: start: 20080722
  23. PAROXETINE [Suspect]
     Active Substance: PAROXETINE
     Indication: Post-traumatic stress disorder
     Dosage: (20 MG THREE TIMES A DAY)
     Route: 065
     Dates: start: 201105, end: 20110706
  24. PAROXETINE [Suspect]
     Active Substance: PAROXETINE
     Indication: Post-traumatic stress disorder
     Dosage: (20 MG THREE TIMES A DAY),
     Route: 065
     Dates: start: 199908, end: 201105
  25. CODEINE [Suspect]
     Active Substance: CODEINE
     Indication: Serotonin syndrome
     Dosage: 15-30 MG,
     Route: 065
     Dates: start: 20110615, end: 20110723
  26. CODEINE [Suspect]
     Active Substance: CODEINE
     Indication: Serotonin syndrome
     Route: 065
     Dates: start: 2008, end: 2008

REACTIONS (99)
  - Neuroleptic malignant syndrome [Unknown]
  - Restless legs syndrome [Not Recovered/Not Resolved]
  - Swelling face [Unknown]
  - Diarrhoea [Unknown]
  - Speech disorder [Unknown]
  - Disturbance in attention [Unknown]
  - Swollen tongue [Unknown]
  - Muscle spasms [Not Recovered/Not Resolved]
  - Dizziness [Unknown]
  - Headache [Unknown]
  - Incontinence [Not Recovered/Not Resolved]
  - Contusion [Not Recovered/Not Resolved]
  - Agitation [Unknown]
  - Tinnitus [Unknown]
  - Fatigue [Not Recovered/Not Resolved]
  - Psychotic disorder [Recovered/Resolved]
  - Paralysis [Unknown]
  - Blood sodium decreased [Unknown]
  - Mania [Unknown]
  - Vision blurred [Unknown]
  - Pyrexia [Unknown]
  - Pallor [Unknown]
  - Muscle disorder [Unknown]
  - Nightmare [Unknown]
  - Tachycardia [Unknown]
  - Asthenia [Unknown]
  - Hallucination [Unknown]
  - Vomiting [Unknown]
  - Exposure during pregnancy [Unknown]
  - Emotional disorder [Unknown]
  - Eye pain [Unknown]
  - Disorientation [Not Recovered/Not Resolved]
  - Sensory loss [Unknown]
  - Hallucinations, mixed [Unknown]
  - Musculoskeletal stiffness [Not Recovered/Not Resolved]
  - Mood swings [Unknown]
  - H1N1 influenza [Unknown]
  - Drug ineffective [Unknown]
  - Hypoaesthesia [Not Recovered/Not Resolved]
  - Balance disorder [Unknown]
  - Visual impairment [Unknown]
  - Suicidal ideation [Not Recovered/Not Resolved]
  - Muscle rigidity [Unknown]
  - Skin discolouration [Not Recovered/Not Resolved]
  - Paralysis [Unknown]
  - Paraesthesia [Unknown]
  - Feeling jittery [Unknown]
  - Urinary retention [Unknown]
  - Depression [Unknown]
  - Dissociation [Not Recovered/Not Resolved]
  - Heart rate increased [Unknown]
  - Serotonin syndrome [Not Recovered/Not Resolved]
  - Hypoaesthesia oral [Unknown]
  - Pruritus [Unknown]
  - Drug ineffective [Unknown]
  - Gait disturbance [Unknown]
  - Sleep disorder [Unknown]
  - Delirium [Unknown]
  - Somnolence [Not Recovered/Not Resolved]
  - Musculoskeletal stiffness [Not Recovered/Not Resolved]
  - Feeling of despair [Unknown]
  - Toxicity to various agents [Unknown]
  - Seizure [Unknown]
  - Feeling of body temperature change [Unknown]
  - Maternal exposure during pregnancy [Unknown]
  - Dizziness [Unknown]
  - Schizophrenia [Unknown]
  - Arthralgia [Unknown]
  - Menstrual disorder [Unknown]
  - Hyperhidrosis [Unknown]
  - Anxiety [Unknown]
  - Drooling [Unknown]
  - Derealisation [Not Recovered/Not Resolved]
  - Therapeutic product ineffective [Unknown]
  - Gastric pH decreased [Unknown]
  - Eye pain [Unknown]
  - Parosmia [Unknown]
  - Contusion [Unknown]
  - Mydriasis [Unknown]
  - Dyspnoea [Unknown]
  - Dystonia [Unknown]
  - Off label use [Unknown]
  - Restlessness [Unknown]
  - Drug interaction [Unknown]
  - Premature labour [Unknown]
  - Aphasia [Not Recovered/Not Resolved]
  - Cogwheel rigidity [Unknown]
  - Dyskinesia [Unknown]
  - Tremor [Not Recovered/Not Resolved]
  - Mood swings [Unknown]
  - Confusional state [Not Recovered/Not Resolved]
  - Depersonalisation/derealisation disorder [Not Recovered/Not Resolved]
  - Cyanosis [Unknown]
  - Limb injury [Unknown]
  - Visual impairment [Unknown]
  - Illness [Unknown]
  - Drug withdrawal syndrome [Unknown]
  - Premature labour [Unknown]
  - Decreased appetite [Unknown]

NARRATIVE: CASE EVENT DATE: 20030101
